FAERS Safety Report 15950399 (Version 1)
Quarter: 2019Q1

REPORT INFORMATION
  Report Type: Spontaneous
  Country: IL (occurrence: IL)
  Receive Date: 20190211
  Receipt Date: 20190211
  Transmission Date: 20190417
  Serious: Yes (Life-Threatening)
  Sender: FDA-Public Use
  Company Number: IL-BAYER-2019-025663

PATIENT
  Age: 81 Year
  Sex: Male

DRUGS (9)
  1. ASPIRIN CARDIO 100 MG [Suspect]
     Active Substance: ASPIRIN
     Indication: MYOCARDIAL ISCHAEMIA
     Dosage: UNK
  2. CARDILOC [Concomitant]
     Active Substance: BISOPROLOL FUMARATE
  3. TAMSULIN [Concomitant]
  4. DISOTHIAZIDE [Concomitant]
     Active Substance: HYDROCHLOROTHIAZIDE
  5. EUCREAS [Concomitant]
     Active Substance: METFORMIN HYDROCHLORIDE\VILDAGLIPTIN
  6. ENALADEX [Concomitant]
     Active Substance: ENALAPRIL MALEATE
  7. OMEPRADEX [Concomitant]
     Active Substance: OMEPRAZOLE
  8. ATORVASTATIN [Concomitant]
     Active Substance: ATORVASTATIN
     Dosage: UNK
  9. REPAGLINIDE TEVA [Concomitant]

REACTIONS (1)
  - Haemorrhagic stroke [None]
